FAERS Safety Report 13564537 (Version 1)
Quarter: 2017Q2

REPORT INFORMATION
  Report Type: Spontaneous
  Country: DK (occurrence: DK)
  Receive Date: 20170519
  Receipt Date: 20170519
  Transmission Date: 20170830
  Serious: Yes (Death, Life-Threatening, Hospitalization)
  Sender: FDA-Public Use
  Company Number: DK-B.I. PHARMACEUTICALS,INC./RIDGEFIELD-2017-BI-028154

PATIENT
  Age: 78 Year
  Sex: Male

DRUGS (2)
  1. PRADAXA [Suspect]
     Active Substance: DABIGATRAN ETEXILATE MESYLATE
     Indication: ATRIAL FIBRILLATION
     Route: 065
  2. ASPIRIN. [Concomitant]
     Active Substance: ASPIRIN
     Indication: PRODUCT USED FOR UNKNOWN INDICATION

REACTIONS (12)
  - Aspiration pleural cavity [Unknown]
  - Procedural pain [Unknown]
  - Blood pressure decreased [Unknown]
  - Multiple organ dysfunction syndrome [Fatal]
  - Haematemesis [Unknown]
  - Blood creatinine increased [Unknown]
  - Dyspnoea [Unknown]
  - Aspiration [Unknown]
  - Rectal haemorrhage [Unknown]
  - Heart rate decreased [Unknown]
  - Cardiac arrest [Unknown]
  - Atrial fibrillation [Unknown]

NARRATIVE: CASE EVENT DATE: 2013
